FAERS Safety Report 22616478 (Version 1)
Quarter: 2023Q2

REPORT INFORMATION
  Report Type: Spontaneous
  Country: JP (occurrence: JP)
  Receive Date: 20230619
  Receipt Date: 20230619
  Transmission Date: 20230721
  Serious: Yes (Hospitalization, Other)
  Sender: FDA-Public Use
  Company Number: JP-BRISTOL-MYERS SQUIBB COMPANY-2023-083695

PATIENT
  Age: 64 Year
  Sex: Female

DRUGS (2)
  1. DACLATASVIR DIHYDROCHLORIDE [Suspect]
     Active Substance: DACLATASVIR DIHYDROCHLORIDE
     Indication: Chronic hepatitis C
  2. ASUNAPREVIR [Suspect]
     Active Substance: ASUNAPREVIR
     Indication: Chronic hepatitis C

REACTIONS (1)
  - Rhabdomyolysis [Recovering/Resolving]
